FAERS Safety Report 7319925-2 (Version None)
Quarter: 2011Q1

REPORT INFORMATION
  Report Type: 
  Country: None (occurrence: None)
  Receive Date: 20110228
  Receipt Date: 20101208
  Transmission Date: 20110831
  Serious: No
  Sender: FDA-Public Use
  Company Number: A0898951A

PATIENT
  Sex: Female

DRUGS (6)
  1. SENSODYNE ISO-ACTIVE MULTI ACTION TOOTHPASTE [Concomitant]
     Indication: DENTAL CARE
  2. DILANTIN [Concomitant]
  3. PHENOBARBITAL TAB [Concomitant]
  4. TEGRETOL [Concomitant]
  5. LAMICTAL [Suspect]
  6. NEURONTIN [Concomitant]

REACTIONS (4)
  - INSOMNIA [None]
  - POOR QUALITY SLEEP [None]
  - OVERDOSE [None]
  - GINGIVAL RECESSION [None]
